FAERS Safety Report 22156337 (Version 1)
Quarter: 2023Q1

REPORT INFORMATION
  Report Type: Spontaneous
  Country: US (occurrence: US)
  Receive Date: 20230330
  Receipt Date: 20230330
  Transmission Date: 20230418
  Serious: No
  Sender: FDA-Public Use
  Company Number: US-SANOFI-01549347

PATIENT
  Age: 59 Year
  Sex: Female

DRUGS (3)
  1. ADMELOG [Suspect]
     Active Substance: INSULIN LISPRO
     Indication: Type 2 diabetes mellitus
     Dosage: 44 UNITS EVERY BEFORE MEALS
     Route: 065
  2. ADMELOG [Suspect]
     Active Substance: INSULIN LISPRO
     Dosage: 28 U, TID
     Route: 065
     Dates: start: 202303
  3. BASAGLAR [Concomitant]
     Active Substance: INSULIN GLARGINE

REACTIONS (2)
  - Skin burning sensation [Unknown]
  - Psoriasis [Unknown]

NARRATIVE: CASE EVENT DATE: 20230306
